FAERS Safety Report 20553315 (Version 1)
Quarter: 2022Q1

REPORT INFORMATION
  Report Type: Spontaneous
  Country: US (occurrence: US)
  Receive Date: 20220304
  Receipt Date: 20220304
  Transmission Date: 20220423
  Serious: No
  Sender: FDA-Public Use
  Company Number: US-PFIZER INC-2021581219

PATIENT
  Age: 64 Year
  Sex: Female
  Weight: 47.63 kg

DRUGS (3)
  1. XANAX [Suspect]
     Active Substance: ALPRAZOLAM
     Indication: Tinnitus
     Dosage: 1 MG, 3X/DAY (1MG THREE TIMES A DAY)
  2. XANAX [Suspect]
     Active Substance: ALPRAZOLAM
     Indication: Hyperacusis
  3. XANAX [Suspect]
     Active Substance: ALPRAZOLAM
     Indication: Hyperacusis

REACTIONS (4)
  - Drug ineffective for unapproved indication [Unknown]
  - Off label use [Unknown]
  - Poor quality product administered [Unknown]
  - Product physical issue [Unknown]
